FAERS Safety Report 20745214 (Version 12)
Quarter: 2024Q3

REPORT INFORMATION
  Report Type: Report from Study
  Country: US (occurrence: US)
  Receive Date: 20220425
  Receipt Date: 20240912
  Transmission Date: 20241016
  Serious: Yes (Disabling, Other)
  Sender: NOVARTIS
  Company Number: US-NOVARTISTESTPH-NVSC2022US095072

PATIENT
  Sex: Male
  Weight: 127.01 kg

DRUGS (4)
  1. ENTRESTO [Suspect]
     Active Substance: SACUBITRIL\VALSARTAN
     Indication: Cardiac failure
     Dosage: 1 DOSAGE FORM, BID (24/26 MG)
     Route: 048
     Dates: start: 20170615
  2. LASIX [Suspect]
     Active Substance: FUROSEMIDE
     Indication: Diuretic therapy
     Dosage: 40 MG, QD
     Route: 048
     Dates: start: 2017
  3. FUROSEMIDE [Suspect]
     Active Substance: FUROSEMIDE
     Indication: Diuretic therapy
     Dosage: 40 MG, QD (IF SWELLING)
     Route: 048
     Dates: start: 2017
  4. FUROSEMIDE [Suspect]
     Active Substance: FUROSEMIDE
     Dosage: 20 MG, QD (INCREASE TO 40 MG ONCE A DAY IF SWELLING)
     Route: 048

REACTIONS (15)
  - Arrhythmia [Not Recovered/Not Resolved]
  - Cardiac disorder [Unknown]
  - Cholelithiasis obstructive [Recovered/Resolved]
  - Abdominal pain upper [Recovered/Resolved]
  - Atrial flutter [Not Recovered/Not Resolved]
  - Weight decreased [Recovering/Resolving]
  - Peripheral swelling [Unknown]
  - Pollakiuria [Not Recovered/Not Resolved]
  - Feeling abnormal [Recovering/Resolving]
  - Weight increased [Unknown]
  - Ventricular extrasystoles [Not Recovered/Not Resolved]
  - Vertigo [Not Recovered/Not Resolved]
  - Fatigue [Recovered/Resolved]
  - Asthenia [Recovered/Resolved]
  - Weight fluctuation [Recovering/Resolving]

NARRATIVE: CASE EVENT DATE: 20190101
